FAERS Safety Report 14838960 (Version 1)
Quarter: 2018Q2

REPORT INFORMATION
  Report Type: Spontaneous
  Country: US (occurrence: US)
  Receive Date: 20180502
  Receipt Date: 20180502
  Transmission Date: 20180711
  Serious: Yes (Death)
  Sender: FDA-Public Use
  Company Number: US-PFIZER INC-2018176026

PATIENT
  Age: 75 Year
  Sex: Male
  Weight: 123 kg

DRUGS (1)
  1. LYRICA [Suspect]
     Active Substance: PREGABALIN
     Dosage: 50 MG, 3X/DAY
     Dates: start: 20160728

REACTIONS (1)
  - Death [Fatal]

NARRATIVE: CASE EVENT DATE: 20180411
